FAERS Safety Report 13161353 (Version 4)
Quarter: 2020Q2

REPORT INFORMATION
  Report Type: Spontaneous
  Country: CO (occurrence: CO)
  Receive Date: 20170130
  Receipt Date: 20200623
  Transmission Date: 20200713
  Serious: Yes (Other)
  Sender: FDA-Public Use
  Company Number: CO-ROCHE-1886373

PATIENT
  Age: 57 Year
  Sex: Male
  Weight: 84 kg

DRUGS (3)
  1. XOLAIR [Suspect]
     Active Substance: OMALIZUMAB
     Indication: ASTHMA
     Route: 058
     Dates: start: 20120116, end: 20161125
  2. XOLAIR [Suspect]
     Active Substance: OMALIZUMAB
     Route: 058
     Dates: start: 20180625
  3. XOLAIR [Suspect]
     Active Substance: OMALIZUMAB
     Route: 058
     Dates: start: 20190105

REACTIONS (3)
  - Influenza [Recovered/Resolved]
  - Pyrexia [Recovered/Resolved]
  - Asphyxia [Recovered/Resolved]

NARRATIVE: CASE EVENT DATE: 20170117
